FAERS Safety Report 20574257 (Version 2)
Quarter: 2022Q1

REPORT INFORMATION
  Report Type: Spontaneous
  Country: AU (occurrence: AU)
  Receive Date: 20220309
  Receipt Date: 20220328
  Transmission Date: 20220423
  Serious: Yes (Other)
  Sender: FDA-Public Use
  Company Number: AU-SA-SAC20220308001539

PATIENT
  Sex: Male

DRUGS (2)
  1. LIBTAYO [Suspect]
     Active Substance: CEMIPLIMAB-RWLC
     Indication: Product used for unknown indication
     Dosage: UNK
     Dates: start: 20220120
  2. LIBTAYO [Suspect]
     Active Substance: CEMIPLIMAB-RWLC
     Dosage: UNK
     Dates: start: 20220210

REACTIONS (2)
  - Amputation [Not Recovered/Not Resolved]
  - Infection [Unknown]
